FAERS Safety Report 25789183 (Version 1)
Quarter: 2025Q3

REPORT INFORMATION
  Report Type: Report from Study
  Country: US (occurrence: US)
  Receive Date: 20250911
  Receipt Date: 20250911
  Transmission Date: 20251020
  Serious: No
  Sender: SANDOZ
  Company Number: US-SANDOZ-SDZ2025US035247

PATIENT
  Age: 12 Year
  Sex: Male

DRUGS (2)
  1. OMNITROPE [Suspect]
     Active Substance: SOMATROPIN
     Indication: Hypopituitarism
     Dosage: 1 MG, QD, STRENGTH-10 MG/1.5 ML
     Route: 058
     Dates: start: 20250515
  2. OMNITROPE [Suspect]
     Active Substance: SOMATROPIN
     Indication: Hypopituitarism
     Dosage: 1 MG, QD, STRENGTH-10 MG/1.5 ML
     Route: 058
     Dates: start: 20250515

REACTIONS (3)
  - Injection site bruising [Unknown]
  - Exposure via skin contact [Unknown]
  - Device use error [Unknown]

NARRATIVE: CASE EVENT DATE: 20250515
